FAERS Safety Report 7572370-7 (Version None)
Quarter: 2011Q2

REPORT INFORMATION
  Report Type: 
  Country: None (occurrence: None)
  Receive Date: 20110624
  Receipt Date: 20110620
  Transmission Date: 20111010
  Serious: Yes (Death, Hospitalization, Other)
  Sender: FDA-Public Use
  Company Number: PHHY2009JP11765

PATIENT
  Sex: Male
  Weight: 71 kg

DRUGS (16)
  1. CLINDAMYCIN HCL [Concomitant]
     Dosage: 1200MG
     Dates: start: 20081031, end: 20081216
  2. AVELOX [Concomitant]
     Dosage: 400 MG
     Route: 048
     Dates: start: 20080825
  3. SLOW-K [Concomitant]
     Dosage: 2400MG
     Route: 048
     Dates: start: 20080825, end: 20081111
  4. RABEPRAZOLE SODIUM [Concomitant]
     Dosage: 20MG
     Route: 048
     Dates: start: 20080825
  5. ALLOID [Concomitant]
     Dosage: 40MG
     Route: 048
     Dates: start: 20081030
  6. ZOSYN [Concomitant]
     Dosage: 18G
     Dates: start: 20081216
  7. VANCOMYCIN [Concomitant]
     Dosage: 1 G
     Route: 042
     Dates: start: 20081216, end: 20081224
  8. VFEND [Concomitant]
     Dosage: 400MG
     Route: 048
     Dates: start: 20080825
  9. SULFAMETHOXAZOLE [Concomitant]
     Dosage: 2T
     Route: 048
     Dates: start: 20080919
  10. RED BLOOD CELLS, CONCENTRATED [Concomitant]
     Dosage: 2 U, BIW
     Dates: start: 20081025, end: 20090220
  11. EXJADE [Suspect]
     Indication: IRON OVERLOAD
     Dosage: 1000 MG DAILY
     Route: 042
     Dates: start: 20080825, end: 20090531
  12. VANCOMYCIN [Concomitant]
     Dosage: 1 G
     Route: 042
     Dates: start: 20080825, end: 20080831
  13. CIPROFLOXACIN HCL [Concomitant]
     Dosage: 600MG
     Route: 048
     Dates: start: 20081114
  14. BLOOD TRANSFUSION, AUXILIARY PRODUCTS [Concomitant]
     Dosage: UNK
     Dates: start: 20070118, end: 20080819
  15. MEROPENEM [Concomitant]
     Dosage: 1G
     Route: 042
     Dates: start: 20080825, end: 20080919
  16. PLATELETS [Concomitant]
     Dosage: 10 U, UNK
     Dates: start: 20080825, end: 20090226

REACTIONS (10)
  - RENAL IMPAIRMENT [None]
  - SUBARACHNOID HAEMORRHAGE [None]
  - CELLULITIS [None]
  - BLOOD GLUCOSE INCREASED [None]
  - NEOPLASM PROGRESSION [None]
  - PYREXIA [None]
  - PULMONARY MYCOSIS [None]
  - OSTEOMYELITIS [None]
  - HEPATIC FUNCTION ABNORMAL [None]
  - NEOPLASM MALIGNANT [None]
